FAERS Safety Report 13191192 (Version 9)
Quarter: 2017Q4

REPORT INFORMATION
  Report Type: Spontaneous
  Country: US (occurrence: US)
  Receive Date: 20170207
  Receipt Date: 20171211
  Transmission Date: 20180320
  Serious: Yes (Other)
  Sender: FDA-Public Use
  Company Number: PHEH2017US003697

PATIENT
  Age: 33 Year
  Sex: Female
  Weight: 61.22 kg

DRUGS (1)
  1. ZOFRAN [Suspect]
     Active Substance: ONDANSETRON HYDROCHLORIDE
     Indication: VOMITING IN PREGNANCY
     Dosage: 4 MG, QD
     Route: 048
     Dates: start: 20040803, end: 20041012

REACTIONS (33)
  - Premature delivery [Unknown]
  - Maternal exposure during pregnancy [Unknown]
  - Vitamin D deficiency [Unknown]
  - Cystitis [Unknown]
  - Eye pruritus [Unknown]
  - Ataxia [Unknown]
  - Tracheomalacia [Unknown]
  - Hypoxic-ischaemic encephalopathy [Unknown]
  - Depression [Unknown]
  - Fatigue [Unknown]
  - Product use in unapproved indication [Unknown]
  - Granulomatosis with polyangiitis [Unknown]
  - Injury [Unknown]
  - Dysuria [Unknown]
  - Thyroid disorder [Unknown]
  - Asthma [Unknown]
  - Craniocerebral injury [Unknown]
  - Cerebrovascular accident [Unknown]
  - Hypocalcaemia [Unknown]
  - Hypothyroidism [Unknown]
  - Fall [Unknown]
  - Urinary tract infection [Unknown]
  - Blindness cortical [Unknown]
  - Seizure [Unknown]
  - Visual impairment [Unknown]
  - Conjunctivitis allergic [Unknown]
  - Haematuria [Unknown]
  - Trigonitis [Unknown]
  - Sleep apnoea syndrome [Unknown]
  - Vitamin B12 deficiency [Unknown]
  - Rhinitis allergic [Unknown]
  - Muscle spasticity [Unknown]
  - Dyspnoea [Unknown]

NARRATIVE: CASE EVENT DATE: 20050329
